FAERS Safety Report 9938671 (Version 2)
Quarter: 2014Q2

REPORT INFORMATION
  Report Type: Spontaneous
  Country: US (occurrence: US)
  Receive Date: 20140303
  Receipt Date: 20140423
  Transmission Date: 20141212
  Serious: Yes (Other)
  Sender: FDA-Public Use
  Company Number: US-JNJFOC-20140213913

PATIENT
  Age: 53 Year
  Sex: Female
  Weight: 63.14 kg

DRUGS (7)
  1. STELARA [Suspect]
     Indication: PSORIASIS
     Route: 058
     Dates: start: 20110216
  2. BETAMETHASONE DIPROPIONATE [Concomitant]
     Route: 061
     Dates: start: 2008
  3. RENOVA [Concomitant]
     Route: 061
     Dates: start: 20110119
  4. METROLOTION [Concomitant]
     Route: 061
     Dates: start: 20120131
  5. TAMOXIFEN [Concomitant]
     Route: 061
     Dates: start: 201308
  6. LEVOTHYROXINE [Concomitant]
     Route: 048
  7. METHOTREXATE [Concomitant]
     Route: 065
     Dates: start: 2010, end: 20110719

REACTIONS (1)
  - Invasive ductal breast carcinoma [Recovering/Resolving]
